FAERS Safety Report 4623267-3 (Version None)
Quarter: 2005Q1

REPORT INFORMATION
  Report Type: 
  Country: None (occurrence: None)
  Receive Date: 20050329
  Receipt Date: 20050317
  Transmission Date: 20050727
  Serious: Yes (Hospitalization)
  Sender: FDA-Public Use
  Company Number: 2005046480

PATIENT
  Age: 59 Year
  Sex: Male
  Weight: 86.1834 kg

DRUGS (8)
  1. NEURONTIN (GABAPENTIN) [Suspect]
     Indication: BURNING SENSATION
     Dosage: 100 MG (100 MG, 1 IN 1 D), ORAL
     Route: 048
     Dates: start: 19930904, end: 20041001
  2. GABAPENTIN [Suspect]
     Indication: BURNING SENSATION
     Dosage: ORAL
     Route: 048
     Dates: start: 20041001
  3. LANSPRAZOLE (LANSPROZOLE) [Concomitant]
  4. LISINOPRIL [Concomitant]
  5. ACETAMINOPHEN [Concomitant]
  6. ATORVASTATIN (ATORVASTATIN) [Concomitant]
  7. IBUPROFEN [Concomitant]
  8. FLUOXETINE HCL [Concomitant]

REACTIONS (4)
  - AMNESIA [None]
  - DISORIENTATION [None]
  - DRUG INEFFECTIVE [None]
  - PHYSICAL EXAMINATION ABNORMAL [None]
